FAERS Safety Report 24288449 (Version 2)
Quarter: 2024Q3

REPORT INFORMATION
  Report Type: Spontaneous
  Country: CN (occurrence: CN)
  Receive Date: 20240906
  Receipt Date: 20240918
  Transmission Date: 20241017
  Serious: Yes (Other)
  Sender: ABBVIE
  Company Number: CN-JNJFOC-20240873492

PATIENT

DRUGS (3)
  1. IMBRUVICA [Suspect]
     Active Substance: IBRUTINIB
     Indication: Diffuse large B-cell lymphoma refractory
     Dosage: 21 DAYS AS 1 CYCLE
     Route: 048
  2. IMBRUVICA [Suspect]
     Active Substance: IBRUTINIB
     Indication: Diffuse large B-cell lymphoma refractory
     Route: 048
  3. DECITABINE [Suspect]
     Active Substance: DECITABINE
     Indication: Diffuse large B-cell lymphoma refractory
     Dosage: 5 CONSECUTIVE DAYS
     Route: 058

REACTIONS (10)
  - White blood cell count decreased [Unknown]
  - Nausea [Unknown]
  - Rash [Unknown]
  - Product use in unapproved indication [Unknown]
  - Pneumonia [Unknown]
  - Platelet count decreased [Unknown]
  - Anaemia [Unknown]
  - Toxicity to various agents [Unknown]
  - Asthenia [Unknown]
  - Therapeutic response unexpected [Unknown]
